FAERS Safety Report 17221499 (Version 1)
Quarter: 2020Q1

REPORT INFORMATION
  Report Type: Spontaneous
  Country: DE (occurrence: DE)
  Receive Date: 20200101
  Receipt Date: 20200101
  Transmission Date: 20200409
  Serious: Yes (Hospitalization)
  Sender: FDA-Public Use
  Company Number: DE-ROCHE-2379947

PATIENT
  Age: 83 Year
  Sex: Female

DRUGS (6)
  1. CHOP [Suspect]
     Active Substance: CYCLOPHOSPHAMIDE\DOXORUBICIN\PREDNISONE\VINCRISTINE
     Indication: DIFFUSE LARGE B-CELL LYMPHOMA
     Dosage: ACCORDING TO R-CHOP 21  REGIMEN, 8 CYCLES
     Route: 065
     Dates: start: 201709, end: 201802
  2. RITUXIMAB. [Suspect]
     Active Substance: RITUXIMAB
     Dosage: GIVEN TOGETHER WITH BENDAMUSTIN
     Route: 065
     Dates: start: 201901, end: 201902
  3. RITUXIMAB. [Suspect]
     Active Substance: RITUXIMAB
     Indication: DIFFUSE LARGE B-CELL LYMPHOMA
     Dosage: ACCORDING TO R-CHOP 21  REGIMEN, 8 CYCLES
     Route: 065
     Dates: start: 201709, end: 201802
  4. METHOTREXATE. [Suspect]
     Active Substance: METHOTREXATE
     Indication: PRODUCT USED FOR UNKNOWN INDICATION
     Route: 065
  5. RITUXIMAB. [Suspect]
     Active Substance: RITUXIMAB
     Dosage: GIVEN TOGETHER WITH METHOTREXAT, 2 CYCLES
     Route: 065
  6. BENDAMUSTINE [Suspect]
     Active Substance: BENDAMUSTINE
     Indication: DIFFUSE LARGE B-CELL LYMPHOMA
     Dosage: GIVEN TOGETHER WITH RITUXIMAB, 2 CYCLES
     Route: 065
     Dates: start: 201901, end: 201902

REACTIONS (3)
  - Pyrexia [Unknown]
  - Influenza [Unknown]
  - Infection [Unknown]

NARRATIVE: CASE EVENT DATE: 201901
